FAERS Safety Report 16641859 (Version 5)
Quarter: 2019Q4

REPORT INFORMATION
  Report Type: Report from Study
  Country: US (occurrence: US)
  Receive Date: 20190729
  Receipt Date: 20191011
  Transmission Date: 20200122
  Serious: Yes (Death, Hospitalization, Other)
  Sender: FDA-Public Use
  Company Number: US-PFIZER INC-2019309127

PATIENT
  Age: 69 Year
  Sex: Female

DRUGS (2)
  1. IBRANCE [Suspect]
     Active Substance: PALBOCICLIB
     Dosage: 125 MG, (EVERY OTHER DAY DAY 1-21 OF 28 DAY CYCLE)
     Route: 048
     Dates: start: 201909
  2. IBRANCE [Suspect]
     Active Substance: PALBOCICLIB
     Indication: BREAST CANCER FEMALE
     Dosage: 125 MG, CYCLIC (DAILY, DAY 1-21 OF 28 DAY CYCLE)
     Route: 048
     Dates: start: 20190714

REACTIONS (13)
  - Death [Fatal]
  - Stomatitis [Unknown]
  - Gastrointestinal motility disorder [Unknown]
  - Fatigue [Unknown]
  - Sepsis [Unknown]
  - Hepatic enzyme abnormal [Unknown]
  - White blood cell count decreased [Unknown]
  - Diarrhoea [Unknown]
  - Haematochezia [Unknown]
  - Pleural effusion [Unknown]
  - Pneumonia [Unknown]
  - Peripheral swelling [Unknown]
  - Nausea [Unknown]

NARRATIVE: CASE EVENT DATE: 2019
